FAERS Safety Report 14160373 (Version 1)
Quarter: 2017Q4

REPORT INFORMATION
  Report Type: Spontaneous
  Country: US (occurrence: US)
  Receive Date: 20171103
  Receipt Date: 20171103
  Transmission Date: 20180321
  Serious: Yes (Other)
  Sender: FDA-Public Use
  Company Number: None

PATIENT
  Age: 86 Year
  Sex: Female
  Weight: 68 kg

DRUGS (2)
  1. PHYTONADIONE. [Suspect]
     Active Substance: PHYTONADIONE
     Indication: INTERNATIONAL NORMALISED RATIO INCREASED
     Dosage: ?          OTHER FREQUENCY:ONCE;?
     Route: 041
  2. PHYTONADIONE. [Suspect]
     Active Substance: PHYTONADIONE
     Indication: HAEMATOMA
     Dosage: ?          OTHER FREQUENCY:ONCE;?
     Route: 041

REACTIONS (2)
  - Flushing [None]
  - Pruritus [None]

NARRATIVE: CASE EVENT DATE: 20171103
